FAERS Safety Report 8452304-3 (Version None)
Quarter: 2012Q2

REPORT INFORMATION
  Report Type: 
  Country: None (occurrence: None)
  Receive Date: 20120620
  Receipt Date: 20120410
  Transmission Date: 20120825
  Serious: No
  Sender: FDA-Public Use
  Company Number: US-VERTEX PHARMACEUTICALS INC.-AE-2012-004925

PATIENT
  Sex: Male
  Weight: 72.64 kg

DRUGS (3)
  1. PEGASYS [Concomitant]
     Indication: HEPATITIS C
     Route: 058
     Dates: start: 20120222
  2. COPEGUS [Concomitant]
     Indication: HEPATITIS C
     Dates: start: 20120222
  3. INCIVEK [Suspect]
     Indication: HEPATITIS C
     Route: 048
     Dates: start: 20120222

REACTIONS (7)
  - WEIGHT DECREASED [None]
  - DIARRHOEA [None]
  - ANAL PRURITUS [None]
  - NAUSEA [None]
  - ANORECTAL DISCOMFORT [None]
  - PYREXIA [None]
  - ASTHENIA [None]
